FAERS Safety Report 5216335-9 (Version None)
Quarter: 2006Q4

REPORT INFORMATION
  Report Type: 
  Country: None (occurrence: None)
  Receive Date: 20061122
  Receipt Date: 20060728
  Transmission Date: 20070319
  Serious: Yes (Other)
  Sender: FDA-Public Use
  Company Number: 2006092679

PATIENT
  Age: 41 Year
  Sex: Male
  Weight: 107.9561 kg

DRUGS (23)
  1. LIPITOR [Suspect]
     Indication: BLOOD CHOLESTEROL
     Dosage: 10 MG (10 MG, 1 IN D)
  2. NEURONTIN [Suspect]
     Indication: NEUROPATHY PERIPHERAL
     Dosage: UNKNOWN (FREQUENCY: TID INTERVAL: EVERY DAY), UNKNOWN
  3. LOPID [Suspect]
     Indication: BLOOD TRIGLYCERIDES INCREASED
  4. LYRICA [Suspect]
     Indication: NEUROPATHY PERIPHERAL
  5. NIACIN [Suspect]
     Indication: BLOOD CHOLESTEROL
  6. NIASPAN [Suspect]
     Indication: BLOOD CHOLESTEROL
  7. CARDIZEM CD [Concomitant]
  8. LOPRESSOR [Concomitant]
  9. COZAAR [Concomitant]
  10. PLAVIX [Concomitant]
  11. DYAZIDE [Concomitant]
  12. LASIX [Concomitant]
  13. ZYRTEC [Concomitant]
  14. VICODIN [Concomitant]
  15. IBUPROFEN [Concomitant]
  16. ALBUTEROL [Concomitant]
  17. VITAMIN C (VITAMIN C) [Concomitant]
  18. COENZYME Q10 [Concomitant]
  19. BRAN (BRAN) [Concomitant]
  20. CALTRATE (CALCIUM CARBONATE) [Concomitant]
  21. MULTIVITAMIN [Concomitant]
  22. FOLIC ACID [Concomitant]
  23. ASPIRIN [Concomitant]

REACTIONS (7)
  - BLOOD TRIGLYCERIDES INCREASED [None]
  - DRY MOUTH [None]
  - FATIGUE [None]
  - NEUROPATHY PERIPHERAL [None]
  - SKIN BURNING SENSATION [None]
  - STOMACH DISCOMFORT [None]
  - THERAPEUTIC RESPONSE DECREASED [None]
